FAERS Safety Report 4639352-6 (Version None)
Quarter: 2005Q2

REPORT INFORMATION
  Report Type: 
  Country: None (occurrence: None)
  Receive Date: 20050418
  Receipt Date: 20050408
  Transmission Date: 20051028
  Serious: No
  Sender: FDA-Public Use
  Company Number: 05P-163-0296892-00

PATIENT
  Age: 53 Year
  Sex: Male
  Weight: 132 kg

DRUGS (6)
  1. HUMIRA [Suspect]
     Indication: RHEUMATOID ARTHRITIS
     Dosage: 40 MG, 1 IN 1 WK, SUBCUTANEOUS
     Route: 058
     Dates: start: 20030101
  2. INSULIN LISPRO [Concomitant]
  3. INSULIN ZINC SUSPENSION [Concomitant]
  4. LOSARTAN POTASSIUM [Concomitant]
  5. CLONIDINE [Concomitant]
  6. LEVOTHYROXINE SODIUM [Concomitant]

REACTIONS (1)
  - HYPOAESTHESIA [None]
